FAERS Safety Report 21291883 (Version 1)
Quarter: 2022Q3

REPORT INFORMATION
  Report Type: Spontaneous
  Country: JP (occurrence: JP)
  Receive Date: 20220904
  Receipt Date: 20220904
  Transmission Date: 20221027
  Serious: Yes (Hospitalization)
  Sender: FDA-Public Use
  Company Number: JP-SA-2022SA288239

PATIENT
  Age: 70 Year
  Sex: Male

DRUGS (12)
  1. DUPIXENT [Suspect]
     Active Substance: DUPILUMAB
     Indication: Chronic rhinosinusitis with nasal polyps
     Dosage: 300 MG, QOW
     Route: 058
     Dates: start: 20220613, end: 20220711
  2. DUPIXENT [Suspect]
     Active Substance: DUPILUMAB
     Indication: Asthma
  3. PREDNISOLONE [Suspect]
     Active Substance: PREDNISOLONE
     Indication: Eosinophil count increased
     Dosage: 20 MG
     Route: 065
     Dates: start: 20220711, end: 20220714
  4. PREDNISOLONE [Suspect]
     Active Substance: PREDNISOLONE
     Dosage: 15MG
     Route: 065
     Dates: start: 20220715, end: 20220719
  5. PREDNISOLONE [Suspect]
     Active Substance: PREDNISOLONE
     Dosage: 10MG
     Route: 065
     Dates: start: 20220719, end: 20220724
  6. PREDNISOLONE [Suspect]
     Active Substance: PREDNISOLONE
     Dosage: 5MG
     Route: 065
     Dates: start: 20220725, end: 202208
  7. PREDNISOLONE [Suspect]
     Active Substance: PREDNISOLONE
     Dosage: 50MG
     Route: 065
     Dates: start: 20220805, end: 20220809
  8. PREDNISOLONE [Suspect]
     Active Substance: PREDNISOLONE
     Dosage: 40MG
     Route: 065
     Dates: start: 20220810, end: 20220813
  9. PREDNISOLONE [Suspect]
     Active Substance: PREDNISOLONE
     Dosage: 40 MG -} 30 MG
     Route: 065
     Dates: start: 20220813, end: 20220815
  10. PREDNISOLONE [Suspect]
     Active Substance: PREDNISOLONE
     Dosage: 30 MG -} 20 MG
     Route: 065
     Dates: start: 20220816, end: 20220818
  11. PREDNISOLONE [Suspect]
     Active Substance: PREDNISOLONE
     Dosage: 12MG
     Route: 065
     Dates: start: 20220822
  12. CELESTAMINE [Suspect]
     Active Substance: BETAMETHASONE\DEXCHLORPHENIRAMINE MALEATE
     Indication: Chronic eosinophilic rhinosinusitis
     Dosage: DAILY DOSE: 2 TABLETS (EVERY OTHER DAY, THE PATIENT WAS PROBABLY CHANGING THE DOSE FREQUENCY AT OWN
     Route: 048
     Dates: start: 202111, end: 20220719

REACTIONS (5)
  - Cough [Recovered/Resolved]
  - Eosinophil count increased [Recovered/Resolved]
  - Myalgia [Recovered/Resolved]
  - Mastication disorder [Recovered/Resolved]
  - Feeding disorder [Recovered/Resolved]

NARRATIVE: CASE EVENT DATE: 20220711
